FAERS Safety Report 6611850-5 (Version None)
Quarter: 2010Q1

REPORT INFORMATION
  Report Type: 
  Country: None (occurrence: None)
  Receive Date: 20100303
  Receipt Date: 20100222
  Transmission Date: 20100710
  Serious: Yes (Hospitalization)
  Sender: FDA-Public Use
  Company Number: FR-MILLENNIUM PHARMACEUTICALS, INC.-2010-01384

PATIENT

DRUGS (25)
  1. VELCADE [Suspect]
     Indication: MULTIPLE MYELOMA
     Dosage: 2.33 MG, UNK
     Dates: start: 20090415, end: 20090427
  2. VELCADE [Suspect]
     Dosage: 2.3 MG, UNK
     Dates: start: 20090511, end: 20090727
  3. DEXAMETHASONE [Concomitant]
     Indication: MULTIPLE MYELOMA
     Dosage: 40 MG, UNK
     Route: 048
     Dates: start: 20090415
  4. CYCLOPHOSPHAMIDE [Concomitant]
     Indication: MULTIPLE MYELOMA
     Dosage: 716 MG, UNK
     Route: 042
     Dates: start: 20090415, end: 20090423
  5. CYCLOPHOSPHAMIDE [Concomitant]
     Dosage: 708 MG, UNK
     Route: 042
     Dates: start: 20090604, end: 20090605
  6. CYCLOPHOSPHAMIDE [Concomitant]
     Dosage: 528 MG, UNK
     Route: 042
     Dates: start: 20090716
  7. ZOLEDRONIC ACID [Concomitant]
     Indication: MULTIPLE MYELOMA
     Dosage: 4 MG, UNK
     Route: 042
     Dates: start: 20090625
  8. FENTANYL-100 [Concomitant]
     Dosage: UNK
     Route: 061
     Dates: start: 20090511
  9. MORPHINE [Concomitant]
     Route: 048
  10. MORPHINE [Concomitant]
     Dosage: UNK
     Route: 042
  11. GRANULOCYTE COLONY STIMULATING FACTOR [Concomitant]
     Dosage: UNK
     Route: 058
     Dates: start: 20090427, end: 20090427
  12. ANTIBIOTICS [Concomitant]
     Dosage: UNK
     Dates: start: 20090427, end: 20090506
  13. ACYCLOVIR [Concomitant]
     Dosage: UNK
     Route: 048
     Dates: start: 20090427, end: 20090511
  14. INEXIUM                            /01479302/ [Concomitant]
     Dosage: UNK
     Dates: start: 20090427
  15. VALACYCLOVIR HCL [Concomitant]
     Dosage: UNK
     Route: 048
     Dates: start: 20090427
  16. ERYTHROPOIETIN HUMAN [Concomitant]
     Dosage: UNK
     Dates: start: 20090427
  17. XYLOCAINE [Concomitant]
     Dosage: UNK
     Dates: start: 20090507, end: 20090507
  18. RED BLOOD CELLS [Concomitant]
     Dosage: UNK
     Dates: start: 20090520, end: 20090520
  19. PLAVIX [Concomitant]
     Dosage: UNK
     Dates: start: 20090525
  20. SEROPLEX [Concomitant]
     Dosage: UNK
     Dates: start: 20090525
  21. SIMVASTATIN [Concomitant]
     Dosage: UNK
     Route: 048
     Dates: start: 20090525
  22. LAROXYL [Concomitant]
     Dosage: UNK
     Dates: start: 20090525
  23. ALPRAZOLAM [Concomitant]
     Dosage: UNK
     Route: 048
     Dates: start: 20090525
  24. LOXEN [Concomitant]
     Dosage: UNK
     Dates: start: 20090525
  25. LACTULOSE [Concomitant]
     Dosage: UNK
     Route: 048
     Dates: start: 20090525

REACTIONS (3)
  - GENERAL PHYSICAL HEALTH DETERIORATION [None]
  - PYREXIA [None]
  - RENAL FAILURE [None]
